FAERS Safety Report 5885469-8 (Version None)
Quarter: 2008Q3

REPORT INFORMATION
  Report Type: 
  Country: None (occurrence: None)
  Receive Date: 20080915
  Receipt Date: 20080915
  Transmission Date: 20090109
  Serious: Yes (Life-Threatening, Hospitalization)
  Sender: FDA-Public Use
  Company Number: None

PATIENT
  Age: 23 Year
  Sex: Female
  Weight: 113.3993 kg

DRUGS (3)
  1. EFFEXOR XR [Suspect]
     Indication: ANXIETY
     Dosage: 75 MG DAILY PO
     Route: 048
     Dates: start: 20080819, end: 20080914
  2. EFFEXOR XR [Suspect]
     Indication: DEPRESSION
     Dosage: 75 MG DAILY PO
     Route: 048
     Dates: start: 20080819, end: 20080914
  3. PROZAC [Concomitant]

REACTIONS (2)
  - MULTIPLE DRUG OVERDOSE INTENTIONAL [None]
  - SUICIDE ATTEMPT [None]
